FAERS Safety Report 16385013 (Version 1)
Quarter: 2019Q2

REPORT INFORMATION
  Report Type: Spontaneous
  Country: JP (occurrence: JP)
  Receive Date: 20190603
  Receipt Date: 20190603
  Transmission Date: 20190711
  Serious: Yes (Hospitalization, Other)
  Sender: FDA-Public Use
  Company Number: JP-ASTRAZENECA-2019SE81548

PATIENT
  Age: 53 Year
  Sex: Male
  Weight: 65 kg

DRUGS (5)
  1. QUETIAPINE. [Suspect]
     Active Substance: QUETIAPINE
     Indication: PRODUCT USED FOR UNKNOWN INDICATION
     Route: 048
  2. CLOBAZAM. [Concomitant]
     Active Substance: CLOBAZAM
     Route: 048
  3. CARBAMAZEPINE. [Concomitant]
     Active Substance: CARBAMAZEPINE
     Route: 048
  4. RISPERIDONE. [Concomitant]
     Active Substance: RISPERIDONE
     Route: 048
  5. FLUNITRAZEPAM [Concomitant]
     Active Substance: FLUNITRAZEPAM
     Route: 048

REACTIONS (2)
  - Ileus paralytic [Unknown]
  - Volvulus [Unknown]
